FAERS Safety Report 5611370-0 (Version None)
Quarter: 2008Q1

REPORT INFORMATION
  Report Type: 
  Country: None (occurrence: None)
  Receive Date: 20080201
  Receipt Date: 20080122
  Transmission Date: 20080703
  Serious: Yes (Hospitalization, Other)
  Sender: FDA-Public Use
  Company Number: FR-PFIZER INC-2008006974

PATIENT
  Sex: Male

DRUGS (1)
  1. LYRICA [Suspect]
     Indication: NEURALGIA
     Dosage: DAILY DOSE:600MG

REACTIONS (7)
  - COORDINATION ABNORMAL [None]
  - HYPERHIDROSIS [None]
  - MYOCLONUS [None]
  - SEROTONIN SYNDROME [None]
  - THYMOMA [None]
  - TREMOR [None]
  - WEIGHT DECREASED [None]
